FAERS Safety Report 15605369 (Version 2)
Quarter: 2019Q1

REPORT INFORMATION
  Report Type: Spontaneous
  Country: JP (occurrence: JP)
  Receive Date: 20181112
  Receipt Date: 20190221
  Transmission Date: 20190417
  Serious: Yes (Other)
  Sender: FDA-Public Use
  Company Number: JP-ASTELLAS-2018JP014321

PATIENT
  Age: 35 Year
  Sex: Female
  Weight: 54 kg

DRUGS (13)
  1. PREDONINE [Concomitant]
     Active Substance: PREDNISOLONE
     Dosage: 17.5 MG, ONCE DAILY, AFTER BREAKFAST
     Route: 048
     Dates: start: 20171206, end: 20171224
  2. AZATHIOPRINE. [Concomitant]
     Active Substance: AZATHIOPRINE
     Indication: PRODUCT USED FOR UNKNOWN INDICATION
     Dosage: UNK UNK, UNKNOWN FREQ.
     Route: 048
  3. PROGRAF [Suspect]
     Active Substance: TACROLIMUS\TACROLIMUS ANHYDROUS
     Dosage: 5 MG, ONCE DAILY, AFTER BREAKFAST
     Route: 048
     Dates: start: 20171011, end: 20180117
  4. PROGRAF [Suspect]
     Active Substance: TACROLIMUS\TACROLIMUS ANHYDROUS
     Dosage: 4 MG, ONCE DAILY, AFTER BREAKFAST
     Route: 048
     Dates: start: 20180118
  5. PREDONINE [Concomitant]
     Active Substance: PREDNISOLONE
     Indication: SYSTEMIC LUPUS ERYTHEMATOSUS
     Dosage: 15 MG, ONCE DAILY, AFTER BREAKFAST
     Route: 048
     Dates: start: 201706, end: 20171205
  6. PREDONINE [Concomitant]
     Active Substance: PREDNISOLONE
     Dosage: 55 MG, ONCE DAILY, AFTER BREAKFAST
     Route: 048
     Dates: start: 20180110, end: 20180123
  7. PREDONINE [Concomitant]
     Active Substance: PREDNISOLONE
     Dosage: TAPERED
     Route: 048
  8. PREDONINE [Concomitant]
     Active Substance: PREDNISOLONE
     Dosage: 50 MG, ONCE DAILY, AFTER BREAKFAST
     Route: 048
     Dates: start: 20180124
  9. ALDOMET [Concomitant]
     Active Substance: METHYLDOPA
     Indication: PRODUCT USED FOR UNKNOWN INDICATION
     Route: 048
     Dates: start: 201706, end: 201801
  10. PROGRAF [Suspect]
     Active Substance: TACROLIMUS\TACROLIMUS ANHYDROUS
     Indication: SYSTEMIC LUPUS ERYTHEMATOSUS
     Dosage: 6 MG, ONCE DAILY, AFTER BREAKFAST
     Route: 048
     Dates: start: 201612, end: 20170925
  11. PREDONINE [Concomitant]
     Active Substance: PREDNISOLONE
     Dosage: 20 MG, ONCE DAILY, AFTER BREAKFAST
     Route: 048
     Dates: start: 20171225, end: 20180105
  12. PROGRAF [Suspect]
     Active Substance: TACROLIMUS\TACROLIMUS ANHYDROUS
     Dosage: 5.5 MG, ONCE DAILY, AFTER BREAKFAST
     Route: 048
     Dates: start: 20170926, end: 20171010
  13. PREDONINE [Concomitant]
     Active Substance: PREDNISOLONE
     Dosage: 40 MG, ONCE DAILY, AFTER BREAKFAST
     Route: 048
     Dates: start: 20180106, end: 20180109

REACTIONS (4)
  - Gestational hypertension [Recovering/Resolving]
  - Maternal exposure during pregnancy [Unknown]
  - Off label use [Unknown]
  - Premature delivery [Unknown]

NARRATIVE: CASE EVENT DATE: 201612
